FAERS Safety Report 25802008 (Version 1)
Quarter: 2025Q3

REPORT INFORMATION
  Report Type: Spontaneous
  Country: US (occurrence: US)
  Receive Date: 20250915
  Receipt Date: 20250915
  Transmission Date: 20251020
  Serious: Yes (Other)
  Sender: KEDRION
  Company Number: US-KEDRION-010463

PATIENT
  Age: 43 Year
  Sex: Male

DRUGS (2)
  1. HUMAN IMMUNOGLOBULIN G [Suspect]
     Active Substance: HUMAN IMMUNOGLOBULIN G
     Indication: Ocular pemphigoid
     Route: 042
  2. RITUXIMAB [Concomitant]
     Active Substance: RITUXIMAB
     Indication: Ocular pemphigoid
     Route: 065

REACTIONS (3)
  - Retinal vein occlusion [Recovering/Resolving]
  - Superficial vein thrombosis [Unknown]
  - Off label use [Unknown]
